FAERS Safety Report 25271343 (Version 1)
Quarter: 2025Q2

REPORT INFORMATION
  Report Type: Spontaneous
  Country: US (occurrence: US)
  Receive Date: 20250506
  Receipt Date: 20250506
  Transmission Date: 20250716
  Serious: No
  Sender: TRIS PHARMA, INC.
  Company Number: US-TRIS PHARMA, INC.-25US011947

PATIENT

DRUGS (4)
  1. ONYDA XR [Suspect]
     Active Substance: CLONIDINE HYDROCHLORIDE
     Indication: Attention deficit hyperactivity disorder
     Dosage: 0.1 MILLIGRAM, QD
     Route: 048
     Dates: start: 20250425
  2. ONYDA XR [Suspect]
     Active Substance: CLONIDINE HYDROCHLORIDE
     Dosage: 0.2 MILLIGRAM, QD
     Route: 048
  3. ONYDA XR [Suspect]
     Active Substance: CLONIDINE HYDROCHLORIDE
     Dosage: 0.1 MILLIGRAM, QD
     Route: 048
     Dates: start: 20250321
  4. ADZENYS ER [Concomitant]
     Active Substance: AMPHETAMINE
     Indication: Attention deficit hyperactivity disorder

REACTIONS (3)
  - Epistaxis [Unknown]
  - Condition aggravated [Unknown]
  - Increased tendency to bruise [Not Recovered/Not Resolved]
